FAERS Safety Report 23069760 (Version 1)
Quarter: 2023Q4

REPORT INFORMATION
  Report Type: Spontaneous
  Country: ES (occurrence: ES)
  Receive Date: 20231016
  Receipt Date: 20231016
  Transmission Date: 20240110
  Serious: Yes (Other)
  Sender: FDA-Public Use
  Company Number: ES-SUN PHARMACEUTICAL INDUSTRIES LTD-2023RR-412885

PATIENT
  Age: 72 Year
  Sex: Male

DRUGS (3)
  1. VENLAFAXINE [Suspect]
     Active Substance: VENLAFAXINE HYDROCHLORIDE
     Indication: Post-traumatic stress disorder
     Dosage: 150 MILLIGRAM, DAILY
     Route: 065
  2. RISPERIDONE [Suspect]
     Active Substance: RISPERIDONE
     Indication: Post-traumatic stress disorder
     Dosage: 1 MILLIGRAM, DAILY
     Route: 065
  3. METHYLPHENIDATE [Suspect]
     Active Substance: METHYLPHENIDATE
     Indication: Post-traumatic stress disorder
     Dosage: 36 MILLIGRAM, DAILY
     Route: 065

REACTIONS (3)
  - Drug ineffective [Unknown]
  - Therapeutic product effect incomplete [Unknown]
  - Headache [Unknown]
